FAERS Safety Report 4686491-X (Version None)
Quarter: 2005Q2

REPORT INFORMATION
  Report Type: 
  Country: None (occurrence: None)
  Receive Date: 20050609
  Receipt Date: 20050601
  Transmission Date: 20051028
  Serious: Yes (Hospitalization)
  Sender: FDA-Public Use
  Company Number: PHBS2005JP08028

PATIENT
  Age: 64 Year
  Sex: Female

DRUGS (3)
  1. MUCOSTA [Concomitant]
     Route: 048
  2. VOLTAREN [Suspect]
     Indication: BACK PAIN
     Route: 048
  3. VOLTAREN [Suspect]
     Route: 048
     Dates: start: 20050501, end: 20050501

REACTIONS (2)
  - SHOCK [None]
  - SKIN REACTION [None]
